FAERS Safety Report 15290828 (Version 1)
Quarter: 2018Q4

REPORT INFORMATION
  Report Type: Spontaneous
  Country: FR (occurrence: FR)
  Receive Date: 20180817
  Receipt Date: 20180817
  Transmission Date: 20190204
  Serious: Yes (Hospitalization)
  Sender: FDA-Public Use
  Company Number: FR-TEVA-2018-FR-941719

PATIENT
  Age: 51 Year
  Sex: Female

DRUGS (5)
  1. PARACETAMOL [Suspect]
     Active Substance: ACETAMINOPHEN
     Indication: TONSILLITIS
     Dosage: 3 GRAM DAILY;
     Route: 048
     Dates: start: 20171207, end: 20171207
  2. HEXASPRAY, COLLUTOIRE EN FLACON PRESSURIS? [Suspect]
     Active Substance: BICLOTYMOL
     Indication: TONSILLITIS
     Dosage: 6 DOSAGE FORMS DAILY; 2 SPRAY 3X PER DAY
     Route: 002
     Dates: start: 20171207, end: 20171207
  3. AMOXICILLINE BASE [Suspect]
     Active Substance: AMOXICILLIN
     Indication: TONSILLITIS
     Dosage: 2 GRAM DAILY;
     Route: 048
     Dates: start: 20171207, end: 20171207
  4. NECYRANE, SOLUTION POUR PULV?RISATION NASALE [Suspect]
     Active Substance: RITIOMETAN MAGNESIUM
     Indication: TONSILLITIS
     Dosage: 6 DOSAGE FORMS DAILY; 2 SPRAY 3X PER DAY
     Route: 045
     Dates: start: 20171207, end: 20171207
  5. DIMETANE SANS SUCRE 133 MG/100 ML, SIROP [Suspect]
     Active Substance: BROMPHENIRAMINE MALEATE\PHOLCODINE
     Indication: TONSILLITIS
     Dosage: 3 DOSAGE FORMS DAILY; 1 SPOON 3X SOUP PER DAY
     Route: 048
     Dates: start: 20171207, end: 20171207

REACTIONS (4)
  - Hypersensitivity [Recovered/Resolved]
  - Chest discomfort [Recovered/Resolved]
  - Urticaria [Recovered/Resolved]
  - Paraesthesia [Recovered/Resolved]

NARRATIVE: CASE EVENT DATE: 20171207
